FAERS Safety Report 11737776 (Version 9)
Quarter: 2017Q1

REPORT INFORMATION
  Report Type: Spontaneous
  Country: US (occurrence: US)
  Receive Date: 20151113
  Receipt Date: 20170329
  Transmission Date: 20170428
  Serious: Yes (Congenital Anomaly, Other)
  Sender: FDA-Public Use
  Company Number: PHEH2015US023478

PATIENT
  Sex: Male

DRUGS (2)
  1. ZOFRAN [Suspect]
     Active Substance: ONDANSETRON HYDROCHLORIDE
     Indication: FOETAL EXPOSURE DURING PREGNANCY
     Route: 064
  2. ZOFRAN [Suspect]
     Active Substance: ONDANSETRON HYDROCHLORIDE
     Indication: FOETAL EXPOSURE DURING PREGNANCY
     Dosage: MOTHER^S DOSE: 4 MG PER 2 ML, QD
     Route: 064

REACTIONS (26)
  - DiGeorge^s syndrome [Unknown]
  - Cardiac murmur [Unknown]
  - Congenital anomaly [Unknown]
  - Ventricular septal defect [Unknown]
  - Fallot^s tetralogy [Not Recovered/Not Resolved]
  - Adrenogenital syndrome [Unknown]
  - Sepsis neonatal [Unknown]
  - Infantile apnoea [Unknown]
  - Multiple congenital abnormalities [Not Recovered/Not Resolved]
  - Congenital pulmonary valve disorder [Unknown]
  - Cystic fibrosis [Unknown]
  - Amblyopia congenital [Unknown]
  - Supraventricular tachycardia [Unknown]
  - Foetal exposure during pregnancy [Unknown]
  - Anhedonia [Unknown]
  - Anxiety [Unknown]
  - Heart disease congenital [Unknown]
  - Pulmonary artery stenosis congenital [Unknown]
  - Neonatal respiratory distress syndrome [Unknown]
  - Emotional distress [Unknown]
  - Pain [Unknown]
  - Patent ductus arteriosus [Unknown]
  - Congenital hypothyroidism [Unknown]
  - Arrhythmia [Unknown]
  - Jaundice neonatal [Unknown]
  - Injury [Unknown]
